FAERS Safety Report 24675922 (Version 6)
Quarter: 2025Q2

REPORT INFORMATION
  Report Type: Report from Study
  Country: GB (occurrence: GB)
  Receive Date: 20241128
  Receipt Date: 20250625
  Transmission Date: 20250716
  Serious: Yes (Death, Other)
  Sender: TAKEDA
  Company Number: GB-TAKEDA-2024TUS095325

PATIENT
  Age: 69 Year
  Sex: Female
  Weight: 95 kg

DRUGS (15)
  1. HUMAN IMMUNOGLOBULIN G\HYALURONIDASE RECOMBINANT HUMAN [Suspect]
     Active Substance: HUMAN IMMUNOGLOBULIN G\HYALURONIDASE (HUMAN RECOMBINANT)
     Indication: Myasthenia gravis
  2. HUMAN IMMUNOGLOBULIN G\HYALURONIDASE RECOMBINANT HUMAN [Suspect]
     Active Substance: HUMAN IMMUNOGLOBULIN G\HYALURONIDASE (HUMAN RECOMBINANT)
  3. HUMAN IMMUNOGLOBULIN G\HYALURONIDASE RECOMBINANT HUMAN [Suspect]
     Active Substance: HUMAN IMMUNOGLOBULIN G\HYALURONIDASE (HUMAN RECOMBINANT)
     Dosage: UNK UNK, 1/WEEK
  4. HUMAN IMMUNOGLOBULIN G\HYALURONIDASE RECOMBINANT HUMAN [Suspect]
     Active Substance: HUMAN IMMUNOGLOBULIN G\HYALURONIDASE (HUMAN RECOMBINANT)
     Dosage: 20 MILLIGRAM, 1/WEEK
  5. HUMAN IMMUNOGLOBULIN G\HYALURONIDASE RECOMBINANT HUMAN [Suspect]
     Active Substance: HUMAN IMMUNOGLOBULIN G\HYALURONIDASE (HUMAN RECOMBINANT)
  6. COCODAMOL [Concomitant]
     Active Substance: ACETAMINOPHEN\CODEINE PHOSPHATE
     Indication: Pain in extremity
  7. PREGABALIN [Concomitant]
     Active Substance: PREGABALIN
  8. PREGABALIN [Concomitant]
     Active Substance: PREGABALIN
  9. ROSUVASTATIN [Concomitant]
     Active Substance: ROSUVASTATIN
     Indication: Hypercholesterolaemia
     Dosage: 10 MILLIGRAM, QD
  10. LEVOTHYROXINE [Concomitant]
     Active Substance: LEVOTHYROXINE
     Indication: Hypothyroidism
     Dosage: 50 MICROGRAM, QD
  11. SERTRALINE [Concomitant]
     Active Substance: SERTRALINE HYDROCHLORIDE
     Indication: Depression
     Dosage: 150 MILLIGRAM, QD
  12. AZATHIOPRINE [Concomitant]
     Active Substance: AZATHIOPRINE
     Indication: Myasthenia gravis
  13. LANSOPRAZOLE [Concomitant]
     Active Substance: LANSOPRAZOLE
     Indication: Gastrooesophageal reflux disease
     Dosage: 30 MILLIGRAM, QD
  14. PREDNISOLONE [Concomitant]
     Active Substance: PREDNISOLONE
     Indication: Myasthenia gravis
     Dosage: 16 MILLIGRAM, QD
  15. PIZOTYLINE [Concomitant]
     Active Substance: PIZOTYLINE
     Indication: Migraine
     Dosage: 1.5 MILLIGRAM, QD

REACTIONS (19)
  - Death [Fatal]
  - Hepatic cancer [Unknown]
  - Gastrointestinal carcinoma [Unknown]
  - Myasthenia gravis [Unknown]
  - Injection site erythema [Unknown]
  - Mobility decreased [Unknown]
  - Arthritis [Unknown]
  - Product use in unapproved indication [Unknown]
  - Device occlusion [Unknown]
  - Bedridden [Unknown]
  - General physical health deterioration [Unknown]
  - Product administration error [Unknown]
  - Urinary tract infection [Not Recovered/Not Resolved]
  - Anxiety [Unknown]
  - Injection site swelling [Unknown]
  - Back pain [Unknown]
  - Pain in extremity [Unknown]
  - Infusion site erythema [Unknown]
  - Infusion site swelling [Unknown]

NARRATIVE: CASE EVENT DATE: 20240901
